FAERS Safety Report 5871854-7 (Version None)
Quarter: 2008Q3

REPORT INFORMATION
  Report Type: 
  Country: None (occurrence: None)
  Receive Date: 20080904
  Receipt Date: 20080904
  Transmission Date: 20090109
  Serious: Yes (Hospitalization)
  Sender: FDA-Public Use
  Company Number: None

PATIENT
  Age: 75 Year
  Sex: Female
  Weight: 72.1219 kg

DRUGS (2)
  1. FERRLECIT [Suspect]
     Indication: PERNICIOUS ANAEMIA
     Dosage: 62.6 MG THREE TIMES/WEEKLY IV DRIP, 3 DOSES
     Route: 041
     Dates: start: 20080820, end: 20080825
  2. FERRLECIT [Suspect]
     Dosage: 125 MG THREE TIMES/WEEKLY IV DRIP, 1 DOSE
     Route: 041
     Dates: start: 20080827, end: 20080827

REACTIONS (4)
  - FEELING COLD [None]
  - HYPERHIDROSIS [None]
  - UNRESPONSIVE TO STIMULI [None]
  - VOMITING [None]
